FAERS Safety Report 4810920-1 (Version None)
Quarter: 2005Q4

REPORT INFORMATION
  Report Type: 
  Country: None (occurrence: None)
  Receive Date: 20051027
  Receipt Date: 20000703
  Transmission Date: 20060501
  Serious: Yes (Hospitalization)
  Sender: FDA-Public Use
  Company Number: GB-SOLVAY-00205003384

PATIENT
  Age: 28419 Day
  Sex: Male

DRUGS (4)
  1. LANSOPRAZOLE [Concomitant]
     Indication: ILL-DEFINED DISORDER
     Dosage: DAILY DOSE:  UNKNOWN
     Route: 065
     Dates: start: 20000220
  2. PERINDOPRIL [Suspect]
     Indication: CARDIAC FAILURE
     Dosage: DAILY DOSE: 4 MILLIGRAM(S)
     Route: 048
     Dates: start: 20000222
  3. ASPIRIN [Concomitant]
     Indication: ILL-DEFINED DISORDER
     Dosage: DAILY DOSE:  UNKNOWN
     Route: 048
     Dates: start: 20000220
  4. ALLOPURINOL [Concomitant]
     Indication: ILL-DEFINED DISORDER
     Dosage: DAILY DOSE:  UNKNOWN
     Route: 065

REACTIONS (10)
  - CARDIAC FAILURE [None]
  - CARDIOVASCULAR DISORDER [None]
  - CELLULITIS [None]
  - CHEST PAIN [None]
  - DYSPNOEA [None]
  - GOUT [None]
  - HALLUCINATION [None]
  - LEFT VENTRICULAR FAILURE [None]
  - PNEUMONIA [None]
  - PULMONARY OEDEMA [None]
